FAERS Safety Report 14152034 (Version 1)
Quarter: 2017Q4

REPORT INFORMATION
  Report Type: Report from Study
  Country: IN (occurrence: IN)
  Receive Date: 20171102
  Receipt Date: 20171102
  Transmission Date: 20180321
  Serious: Yes (Death, Other)
  Sender: FDA-Public Use
  Company Number: PHHY2016IN085670

PATIENT
  Age: 27 Year
  Sex: Male

DRUGS (2)
  1. GLIVEC [Suspect]
     Active Substance: IMATINIB MESYLATE
     Dosage: 600 MG, UNK
     Route: 065
  2. GLIVEC [Suspect]
     Active Substance: IMATINIB MESYLATE
     Indication: CHRONIC MYELOID LEUKAEMIA
     Dosage: 400 MG, UNK
     Route: 065

REACTIONS (6)
  - Pneumonia [Unknown]
  - Cytogenetic analysis abnormal [Unknown]
  - Drug intolerance [Unknown]
  - Death [Fatal]
  - Therapy non-responder [Unknown]
  - Pyrexia [Unknown]

NARRATIVE: CASE EVENT DATE: 20170727
